FAERS Safety Report 7298110-7 (Version None)
Quarter: 2011Q1

REPORT INFORMATION
  Report Type: 
  Country: None (occurrence: None)
  Receive Date: 20110217
  Receipt Date: 20110209
  Transmission Date: 20110831
  Serious: Yes (Hospitalization)
  Sender: FDA-Public Use
  Company Number: US-JNJFOC-20110203353

PATIENT
  Sex: Female
  Weight: 80.74 kg

DRUGS (3)
  1. PREDNISONE TAB [Concomitant]
     Indication: INFLAMMATION
     Route: 048
  2. TRAZODONE [Concomitant]
     Indication: SLEEP DISORDER THERAPY
     Dosage: AT BEDTIME
     Route: 048
  3. REMICADE [Suspect]
     Indication: RHEUMATOID ARTHRITIS
     Route: 042

REACTIONS (5)
  - URTICARIA [None]
  - DIARRHOEA [None]
  - VOMITING [None]
  - CHEST PAIN [None]
  - PRURITUS GENERALISED [None]
